FAERS Safety Report 5214844-X (Version None)
Quarter: 2007Q1

REPORT INFORMATION
  Report Type: 
  Country: None (occurrence: None)
  Receive Date: 20070122
  Receipt Date: 20070122
  Transmission Date: 20070707
  Serious: Yes (Other)
  Sender: FDA-Public Use
  Company Number: None

PATIENT
  Sex: Female
  Weight: 96.1626 kg

DRUGS (1)
  1. SIMVASTATIN [Suspect]
     Indication: BLOOD CHOLESTEROL INCREASED
     Dosage: 40MG ONCE A DAY
     Dates: start: 20050101, end: 20060119

REACTIONS (4)
  - FUNGAL INFECTION [None]
  - STOMATITIS [None]
  - TONGUE DISORDER [None]
  - TONGUE HAEMORRHAGE [None]
